FAERS Safety Report 11758045 (Version 1)
Quarter: 2015Q4

REPORT INFORMATION
  Report Type: Report from Study
  Country: US (occurrence: US)
  Receive Date: 20151120
  Receipt Date: 20151120
  Transmission Date: 20160304
  Serious: Yes (Other)
  Sender: FDA-Public Use
  Company Number: US-AMGEN-USASL2015098816

PATIENT

DRUGS (1)
  1. SENSIPAR [Suspect]
     Active Substance: CINACALCET HYDROCHLORIDE
     Indication: PRODUCT USED FOR UNKNOWN INDICATION
     Dosage: 30 MG, QD
     Route: 048

REACTIONS (8)
  - Headache [Unknown]
  - Hypoaesthesia [Unknown]
  - Arrhythmia [Unknown]
  - Paraesthesia [Unknown]
  - Nausea [Unknown]
  - Suicidal ideation [Unknown]
  - Muscle spasms [Recovered/Resolved]
  - Myalgia [Unknown]
